FAERS Safety Report 9345514 (Version 1)
Quarter: 2013Q2

REPORT INFORMATION
  Report Type: Spontaneous
  Country: GB (occurrence: GB)
  Receive Date: 20130613
  Receipt Date: 20130613
  Transmission Date: 20140414
  Serious: Yes (Other)
  Sender: FDA-Public Use
  Company Number: GB-JNJFOC-20130523173

PATIENT
  Age: 28 Year
  Sex: Male

DRUGS (1)
  1. DOXORUBICIN [Suspect]
     Indication: HODGKIN^S DISEASE
     Route: 042

REACTIONS (4)
  - Erythema [Unknown]
  - Pain [Unknown]
  - Swelling [Unknown]
  - Extravasation [Unknown]
